FAERS Safety Report 25606597 (Version 1)
Quarter: 2025Q3

REPORT INFORMATION
  Report Type: Spontaneous
  Country: EU (occurrence: EU)
  Receive Date: 20250725
  Receipt Date: 20250725
  Transmission Date: 20251020
  Serious: Yes (Other)
  Sender: AMGEN
  Company Number: EU-AMGEN-ITASP2025140880

PATIENT
  Age: 50 Year
  Sex: Male

DRUGS (7)
  1. ROMIPLOSTIM [Suspect]
     Active Substance: ROMIPLOSTIM
     Indication: Immune thrombocytopenia
     Dosage: 1 MICROGRAM/KILOGRAM, QWK
     Route: 058
     Dates: start: 202207
  2. ROMIPLOSTIM [Suspect]
     Active Substance: ROMIPLOSTIM
     Route: 058
  3. BICTEGRAVIR [Concomitant]
     Active Substance: BICTEGRAVIR
     Indication: Antiretroviral therapy
     Dosage: 50 MILLIGRAM, QD
  4. EMTRICITABINE [Concomitant]
     Active Substance: EMTRICITABINE
     Indication: Antiretroviral therapy
     Dosage: 200 MILLIGRAM, QD
  5. TENOFOVIR ALAFENAMIDE [Concomitant]
     Active Substance: TENOFOVIR ALAFENAMIDE
     Indication: Antiretroviral therapy
     Dosage: 25 MILLIGRAM, QD
  6. METHYLPREDNISOLONE [Concomitant]
     Active Substance: METHYLPREDNISOLONE
     Indication: Immune thrombocytopenia
     Dosage: 1 MILLIGRAM/KILOGRAM, QD
     Route: 040
  7. PREDNISONE [Concomitant]
     Active Substance: PREDNISONE
     Indication: Immune thrombocytopenia
     Route: 048

REACTIONS (4)
  - Platelet count decreased [Recovered/Resolved]
  - Drug ineffective [Unknown]
  - Petechiae [Recovered/Resolved]
  - Mouth haemorrhage [Recovered/Resolved]
